FAERS Safety Report 25307737 (Version 1)
Quarter: 2025Q2

REPORT INFORMATION
  Report Type: Spontaneous
  Country: US (occurrence: US)
  Receive Date: 20250513
  Receipt Date: 20250513
  Transmission Date: 20250716
  Serious: Yes (Other)
  Sender: GLAXOSMITHKLINE
  Company Number: US-GSK-US2025055766

PATIENT

DRUGS (2)
  1. BREO ELLIPTA [Suspect]
     Active Substance: FLUTICASONE FUROATE\VILANTEROL TRIFENATATE
     Indication: Chronic obstructive pulmonary disease
     Dosage: 1 PUFF(S), QD,100/25MCG
     Route: 055
  2. BREO ELLIPTA [Suspect]
     Active Substance: FLUTICASONE FUROATE\VILANTEROL TRIFENATATE
     Indication: Pneumothorax

REACTIONS (13)
  - Cancer cells present [Unknown]
  - Pneumothorax [Unknown]
  - Burn oral cavity [Not Recovered/Not Resolved]
  - Oropharyngeal candidiasis [Unknown]
  - Oral candidiasis [Unknown]
  - Candida infection [Unknown]
  - Swollen tongue [Unknown]
  - Tongue exfoliation [Not Recovered/Not Resolved]
  - Glossodynia [Not Recovered/Not Resolved]
  - Tongue coated [Not Recovered/Not Resolved]
  - Skin ulcer [Unknown]
  - Drooling [Unknown]
  - Off label use [Unknown]
